FAERS Safety Report 7766912-6 (Version None)
Quarter: 2011Q3

REPORT INFORMATION
  Report Type: 
  Country: None (occurrence: None)
  Receive Date: 20110922
  Receipt Date: 20110919
  Transmission Date: 20111222
  Serious: No
  Sender: FDA-Public Use
  Company Number: US-PFIZER INC-2011221991

PATIENT
  Sex: Female
  Weight: 122.45 kg

DRUGS (3)
  1. NORGESTIMATE AND ETHINYL ESTRADIOL [Concomitant]
     Indication: CONTRACEPTION
     Dosage: DAILY
     Route: 048
  2. CHANTIX [Suspect]
     Indication: SMOKING CESSATION THERAPY
     Dosage: 0.5 MG, 1X/DAY
     Route: 048
     Dates: start: 20110917
  3. ADVIL LIQUI-GELS [Concomitant]
     Indication: HEADACHE
     Dosage: 200 MG, 3 TIMES A DAY, AS NEEDED
     Route: 048

REACTIONS (4)
  - NOCTURIA [None]
  - FATIGUE [None]
  - HEADACHE [None]
  - POLLAKIURIA [None]
